FAERS Safety Report 18144740 (Version 1)
Quarter: 2020Q3

REPORT INFORMATION
  Report Type: Spontaneous
  Country: US (occurrence: US)
  Receive Date: 20200813
  Receipt Date: 20200813
  Transmission Date: 20201103
  Serious: Yes (Life-Threatening)
  Sender: FDA-Public Use
  Company Number: US-PFIZER INC-2020295038

PATIENT
  Age: 27 Year
  Sex: Male

DRUGS (2)
  1. PHENYTOIN SODIUM. [Suspect]
     Active Substance: PHENYTOIN SODIUM
     Indication: PARTIAL SEIZURES
     Dosage: 300 MG, DAILY (MAINTENANCE THERAPY)
  2. FOSPHENYTOIN SODIUM. [Suspect]
     Active Substance: FOSPHENYTOIN SODIUM
     Indication: PARTIAL SEIZURES
     Dosage: UNK (LOADING DOSE)
     Route: 042

REACTIONS (2)
  - Rash maculo-papular [Unknown]
  - Drug eruption [Unknown]
